FAERS Safety Report 24455038 (Version 2)
Quarter: 2024Q4

REPORT INFORMATION
  Report Type: Spontaneous
  Country: NO (occurrence: NO)
  Receive Date: 20241017
  Receipt Date: 20241018
  Transmission Date: 20250115
  Serious: No
  Sender: ROCHE
  Company Number: NO-ABBVIE-4727461

PATIENT
  Sex: Male

DRUGS (2)
  1. RITUXIMAB [Suspect]
     Active Substance: RITUXIMAB
     Indication: Lymphocytosis
     Route: 065
     Dates: start: 202002, end: 202202
  2. VENETOCLAX [Suspect]
     Active Substance: VENETOCLAX
     Indication: Lymphocytosis
     Route: 065
     Dates: start: 202002, end: 202202

REACTIONS (2)
  - Diarrhoea [Unknown]
  - Weight decreased [Unknown]
